FAERS Safety Report 18955838 (Version 1)
Quarter: 2021Q1

REPORT INFORMATION
  Report Type: Spontaneous
  Country: US (occurrence: US)
  Receive Date: 20210301
  Receipt Date: 20210301
  Transmission Date: 20210420
  Serious: No
  Sender: FDA-Public Use
  Company Number: US-ABBVIE-20K-163-3414393-00

PATIENT
  Sex: Male

DRUGS (2)
  1. TESTOSTERONE. [Suspect]
     Active Substance: TESTOSTERONE
     Indication: PRODUCT USED FOR UNKNOWN INDICATION
     Route: 061
  2. TESTOSTERONE. [Suspect]
     Active Substance: TESTOSTERONE
     Dosage: DOSE WAS INCREASED TO 100 MG OR 5 PUMPS
     Route: 065

REACTIONS (2)
  - Skin irritation [Unknown]
  - Off label use [Unknown]
